FAERS Safety Report 5762232-X (Version None)
Quarter: 2008Q2

REPORT INFORMATION
  Report Type: 
  Country: None (occurrence: None)
  Receive Date: 20080609
  Receipt Date: 20080101
  Transmission Date: 20081010
  Serious: No
  Sender: FDA-Public Use
  Company Number: US-BAYER-200810216NA

PATIENT
  Age: 31 Year
  Sex: Female
  Weight: 79 kg

DRUGS (4)
  1. MIRENA [Suspect]
     Indication: CONTRACEPTION
     Route: 015
     Dates: start: 20071205, end: 20080101
  2. SINGULAIR [Concomitant]
     Indication: ASTHMA
     Dates: start: 20070801
  3. ASTHMADEX [Concomitant]
     Indication: ASTHMA
     Route: 055
     Dates: start: 20070801
  4. ALBUTEROL [Concomitant]
     Indication: ASTHMA

REACTIONS (3)
  - IUCD COMPLICATION [None]
  - POST PROCEDURAL HAEMORRHAGE [None]
  - VULVOVAGINAL DISCOMFORT [None]
